FAERS Safety Report 8446253-4 (Version None)
Quarter: 2012Q2

REPORT INFORMATION
  Report Type: 
  Country: None (occurrence: None)
  Receive Date: 20120618
  Receipt Date: 20120605
  Transmission Date: 20120825
  Serious: Yes (Life-Threatening)
  Sender: FDA-Public Use
  Company Number: JP-PFIZER INC-2012078353

PATIENT
  Age: 72 Year
  Sex: Female

DRUGS (12)
  1. BISOPROLOL FUMARATE [Concomitant]
     Dosage: UNK
  2. CALCIUM CARBONATE [Concomitant]
     Dosage: UNK
  3. LIVALO [Concomitant]
     Dosage: UNK
  4. AVAPRO [Concomitant]
     Dosage: UNK
  5. VERAPAMIL HCL [Concomitant]
     Dosage: UNK
  6. ALFAROL [Concomitant]
     Dosage: UNK
  7. PLETAL [Concomitant]
     Dosage: UNK
  8. ADALAT CC [Concomitant]
     Dosage: UNK
  9. DILTIAZEM HCL [Concomitant]
     Dosage: UNK
  10. SIGMART [Concomitant]
     Dosage: UNK
  11. MIGLITOL [Suspect]
     Indication: DIABETES MELLITUS
     Dosage: 225 MG, 1X/DAY
     Route: 048
     Dates: end: 20120315
  12. ASPIRIN [Concomitant]
     Dosage: UNK

REACTIONS (2)
  - PNEUMATOSIS INTESTINALIS [None]
  - INTESTINAL ISCHAEMIA [None]
